FAERS Safety Report 8251011-X (Version None)
Quarter: 2012Q2

REPORT INFORMATION
  Report Type: 
  Country: None (occurrence: None)
  Receive Date: 20120402
  Receipt Date: 20120328
  Transmission Date: 20120825
  Serious: No
  Sender: FDA-Public Use
  Company Number: US-PFIZER INC-2012079845

PATIENT
  Sex: Female
  Weight: 58.957 kg

DRUGS (1)
  1. EFFEXOR XR [Suspect]
     Indication: ANXIETY
     Dosage: 75 MG, 1X/DAY
     Route: 048
     Dates: start: 20060601

REACTIONS (4)
  - INSOMNIA [None]
  - AGITATION [None]
  - DRUG EFFECT DECREASED [None]
  - ANXIETY [None]
